FAERS Safety Report 4548738-X (Version None)
Quarter: 2005Q1

REPORT INFORMATION
  Report Type: 
  Country: None (occurrence: None)
  Receive Date: 20050107
  Receipt Date: 20050107
  Transmission Date: 20050727
  Serious: Yes (Hospitalization)
  Sender: FDA-Public Use
  Company Number: None

PATIENT
  Sex: Male
  Weight: 66.6788 kg

DRUGS (2)
  1. CLOFARABINE [Suspect]
     Indication: ACUTE MYELOID LEUKAEMIA RECURRENT
     Dosage: 72 MG IV DAILY X 5 DOSES
     Route: 042
     Dates: start: 20041224, end: 20041228
  2. LEVAQUIN [Concomitant]

REACTIONS (5)
  - ERYTHEMA [None]
  - FEBRILE NEUTROPENIA [None]
  - PRURITUS [None]
  - RASH [None]
  - STOMATITIS [None]
